FAERS Safety Report 10496763 (Version 25)
Quarter: 2017Q3

REPORT INFORMATION
  Report Type: Report from Study
  Country: CA (occurrence: CA)
  Receive Date: 20141006
  Receipt Date: 20170707
  Transmission Date: 20171127
  Serious: Yes (Death, Other)
  Sender: FDA-Public Use
  Company Number: CA-ROCHE-1311501

PATIENT
  Age: 62 Year
  Sex: Male
  Weight: 57 kg

DRUGS (15)
  1. FOLIC ACID. [Concomitant]
     Active Substance: FOLIC ACID
  2. ACTEMRA [Suspect]
     Active Substance: TOCILIZUMAB
     Route: 042
     Dates: start: 20141031
  3. ACTEMRA [Suspect]
     Active Substance: TOCILIZUMAB
     Route: 042
     Dates: start: 20160226
  4. PALAFER [Concomitant]
     Active Substance: FERROUS FUMARATE
  5. ACTEMRA [Suspect]
     Active Substance: TOCILIZUMAB
     Indication: RHEUMATOID ARTHRITIS
     Route: 042
     Dates: start: 20130904, end: 20161230
  6. RABEPRAZOLE [Concomitant]
     Active Substance: RABEPRAZOLE
  7. RAMIPRIL. [Concomitant]
     Active Substance: RAMIPRIL
  8. ACTEMRA [Suspect]
     Active Substance: TOCILIZUMAB
     Route: 042
     Dates: start: 20140202
  9. METHOTREXATE. [Concomitant]
     Active Substance: METHOTREXATE
  10. CELEBREX [Concomitant]
     Active Substance: CELECOXIB
  11. ACTEMRA [Suspect]
     Active Substance: TOCILIZUMAB
     Route: 042
     Dates: start: 20131126
  12. ACTEMRA [Suspect]
     Active Substance: TOCILIZUMAB
     Route: 042
     Dates: start: 20140219
  13. ACTEMRA [Suspect]
     Active Substance: TOCILIZUMAB
     Route: 042
     Dates: start: 20140903
  14. ACTEMRA [Suspect]
     Active Substance: TOCILIZUMAB
     Indication: RHEUMATOID ARTHRITIS
     Route: 058
     Dates: start: 20170201, end: 2017
  15. PREDNISONE. [Concomitant]
     Active Substance: PREDNISONE

REACTIONS (21)
  - Weight decreased [Not Recovered/Not Resolved]
  - Weight increased [Unknown]
  - Infusion related reaction [Unknown]
  - Weight decreased [Unknown]
  - Underdose [Unknown]
  - Device occlusion [Recovered/Resolved]
  - Heart rate increased [Unknown]
  - Oxygen saturation decreased [Unknown]
  - Oxygen saturation decreased [Unknown]
  - Blood pressure diastolic decreased [Unknown]
  - Rheumatoid arthritis [Not Recovered/Not Resolved]
  - Abdominal pain [Not Recovered/Not Resolved]
  - Liver disorder [Unknown]
  - Stress [Unknown]
  - Blood pressure fluctuation [Unknown]
  - Neck pain [Not Recovered/Not Resolved]
  - Hepatic cancer [Fatal]
  - Hypertension [Unknown]
  - Heart rate decreased [Unknown]
  - Dry mouth [Not Recovered/Not Resolved]
  - Pain in jaw [Not Recovered/Not Resolved]

NARRATIVE: CASE EVENT DATE: 20131126
